FAERS Safety Report 24335958 (Version 1)
Quarter: 2024Q3

REPORT INFORMATION
  Report Type: Spontaneous
  Country: US (occurrence: US)
  Receive Date: 20240919
  Receipt Date: 20240919
  Transmission Date: 20241017
  Serious: Yes (Other)
  Sender: SPECGX
  Company Number: US-SPECGX-T202401897

PATIENT
  Age: 49 Year
  Sex: Female

DRUGS (2)
  1. METHADONE [Suspect]
     Active Substance: METHADONE HYDROCHLORIDE
     Indication: Product used for unknown indication
     Dosage: UNK
     Route: 065
  2. NALOXONE [Suspect]
     Active Substance: NALOXONE
     Indication: Overdose
     Dosage: 2 MILLIGRAM
     Route: 042

REACTIONS (6)
  - Respiratory distress [Unknown]
  - Overdose [Unknown]
  - Pulmonary oedema [Recovered/Resolved]
  - Drug abuse [Unknown]
  - Mechanical ventilation [Unknown]
  - Endotracheal intubation [Unknown]
